FAERS Safety Report 25844627 (Version 2)
Quarter: 2025Q4

REPORT INFORMATION
  Report Type: Spontaneous
  Country: RU (occurrence: RU)
  Receive Date: 20250925
  Receipt Date: 20251007
  Transmission Date: 20260117
  Serious: Yes (Death, Hospitalization)
  Sender: BEIGENE
  Company Number: RU-BEIGENE-BGN-2025-016319

PATIENT
  Age: 58 Year

DRUGS (3)
  1. BRUKINSA [Suspect]
     Active Substance: ZANUBRUTINIB
     Indication: Chronic lymphocytic leukaemia
     Dosage: 160 MILLIGRAM, BID
  2. ALLOPURINOL [Concomitant]
     Active Substance: ALLOPURINOL
  3. EUTHYROX [Concomitant]
     Active Substance: LEVOTHYROXINE SODIUM
     Indication: Hypothyroidism

REACTIONS (6)
  - Disease progression [Fatal]
  - Drug ineffective [Fatal]
  - Abdominal pain [Fatal]
  - Abdominal distension [Fatal]
  - Lymphadenopathy [Fatal]
  - Pain [Unknown]
